FAERS Safety Report 19412445 (Version 1)
Quarter: 2021Q2

REPORT INFORMATION
  Report Type: Spontaneous
  Country: US (occurrence: US)
  Receive Date: 20210614
  Receipt Date: 20210614
  Transmission Date: 20210717
  Serious: No
  Sender: FDA-Public Use
  Company Number: US-MYLANLABS-2021M1031539

PATIENT
  Sex: Female

DRUGS (1)
  1. LANSOPRAZOLE DELAYED?RELEASE CAPSULES USP [Suspect]
     Active Substance: LANSOPRAZOLE
     Indication: GASTROOESOPHAGEAL REFLUX DISEASE
     Dosage: 15 MILLIGRAM, QID
     Route: 048

REACTIONS (2)
  - Off label use [Not Recovered/Not Resolved]
  - Product container seal issue [Unknown]
